FAERS Safety Report 5825975-5 (Version None)
Quarter: 2008Q3

REPORT INFORMATION
  Report Type: 
  Country: None (occurrence: None)
  Receive Date: 20080723
  Receipt Date: 20080617
  Transmission Date: 20090109
  Serious: Yes (Disabling)
  Sender: FDA-Public Use
  Company Number: 88504

PATIENT
  Age: 77 Year
  Sex: Male
  Weight: 70.6 kg

DRUGS (6)
  1. IBUPROFEN TABLETS [Suspect]
     Dosage: 400MG/3/1/DAY/ORAL  USE
     Route: 048
     Dates: start: 20080401
  2. CLOPIDOGREL [Suspect]
     Indication: ATRIAL FIBRILLATION
     Dosage: 75MG/U/ORAL USE
     Route: 048
     Dates: start: 20080317, end: 20080417
  3. ENTACAPONE ORAL USE 200 MG [Concomitant]
  4. MADOPAR ORAL USE [Concomitant]
  5. ROPINIROLE ORAL 24 MG [Concomitant]
  6. FERROUS SULFATE (ANEMIA) [Concomitant]

REACTIONS (3)
  - CONFUSIONAL STATE [None]
  - DRUG INTERACTION [None]
  - HALLUCINATION, VISUAL [None]
